FAERS Safety Report 8979285 (Version 1)
Quarter: 2012Q4

REPORT INFORMATION
  Report Type: 
  Country: US (occurrence: US)
  Receive Date: 20121221
  Receipt Date: 20121221
  Transmission Date: 20130627
  Serious: No
  Sender: FDA-Public Use
  Company Number: US-ASTRAZENECA-2011SE47163

PATIENT
  Age: 64 Year
  Sex: Male

DRUGS (3)
  1. NEXIUM [Suspect]
     Route: 048
  2. TOPROL XL [Suspect]
     Route: 048
  3. TOPROL XL [Suspect]
     Route: 048

REACTIONS (2)
  - Dyspepsia [Unknown]
  - Heart rate increased [Unknown]
